FAERS Safety Report 8434768-4 (Version None)
Quarter: 2012Q2

REPORT INFORMATION
  Report Type: 
  Country: None (occurrence: None)
  Receive Date: 20120614
  Receipt Date: 20120604
  Transmission Date: 20120825
  Serious: Yes (Other)
  Sender: FDA-Public Use
  Company Number: CA-JNJFOC-20120602856

PATIENT
  Sex: Female
  Weight: 56.7 kg

DRUGS (1)
  1. REMICADE [Suspect]
     Indication: CROHN'S DISEASE
     Route: 042
     Dates: start: 20120301, end: 20120401

REACTIONS (5)
  - ASTHENIA [None]
  - NAUSEA [None]
  - MALAISE [None]
  - ONYCHOMYCOSIS [None]
  - VOMITING [None]
